FAERS Safety Report 25087831 (Version 1)
Quarter: 2025Q1

REPORT INFORMATION
  Report Type: Spontaneous
  Country: CN (occurrence: CN)
  Receive Date: 20250318
  Receipt Date: 20250318
  Transmission Date: 20250408
  Serious: Yes (Life-Threatening)
  Sender: JOHNSON AND JOHNSON
  Company Number: CN-JNJFOC-20250341159

PATIENT
  Age: 60 Year
  Sex: Female
  Weight: 59.0 kg

DRUGS (9)
  1. DARZALEX [Suspect]
     Active Substance: DARATUMUMAB
     Indication: Plasma cell myeloma
     Dosage: DAY1, 8, 15, 22
     Route: 041
     Dates: start: 20250228, end: 20250228
  2. DARZALEX [Suspect]
     Active Substance: DARATUMUMAB
     Dosage: DAY1, 8, 15, 22
     Route: 041
     Dates: start: 20240929
  3. DARZALEX [Suspect]
     Active Substance: DARATUMUMAB
     Route: 041
     Dates: start: 20241211
  4. DARZALEX [Suspect]
     Active Substance: DARATUMUMAB
     Dosage: DAY1, 8, 15, 22
     Route: 041
     Dates: start: 20250228, end: 20250228
  5. VELCADE [Suspect]
     Active Substance: BORTEZOMIB
     Indication: Plasma cell myeloma
     Route: 065
     Dates: start: 20240929
  6. VELCADE [Suspect]
     Active Substance: BORTEZOMIB
     Route: 065
     Dates: start: 20241211
  7. DEXAMETHASONE [Suspect]
     Active Substance: DEXAMETHASONE
     Indication: Plasma cell myeloma
     Route: 040
     Dates: start: 20240929
  8. DEXAMETHASONE [Suspect]
     Active Substance: DEXAMETHASONE
     Route: 040
  9. DEXAMETHASONE [Suspect]
     Active Substance: DEXAMETHASONE
     Route: 040
     Dates: start: 20241211

REACTIONS (4)
  - Dyspnoea [Recovering/Resolving]
  - Discomfort [Recovering/Resolving]
  - Heart rate increased [Recovering/Resolving]
  - Infusion related reaction [Recovering/Resolving]

NARRATIVE: CASE EVENT DATE: 20250228
